FAERS Safety Report 8878761 (Version 2)
Quarter: 2012Q4

REPORT INFORMATION
  Report Type: 
  Country: US (occurrence: US)
  Receive Date: 20121030
  Receipt Date: 20121227
  Transmission Date: 20130627
  Serious: Yes (Disabling, Other)
  Sender: FDA-Public Use
  Company Number: US-PERRIGO-12US004786

PATIENT
  Age: 42 None
  Sex: Female
  Weight: 70.3 kg

DRUGS (1)
  1. TIOCONAZOLE OINTMENT 6.5% [Suspect]
     Indication: VULVOVAGINAL MYCOTIC INFECTION
     Dosage: One application, single
     Route: 067
     Dates: start: 20120528, end: 20120528

REACTIONS (5)
  - Nerve injury [Not Recovered/Not Resolved]
  - Genital hypoaesthesia [Not Recovered/Not Resolved]
  - Vulvovaginal swelling [Recovered/Resolved]
  - Heart rate increased [Recovered/Resolved]
  - Blood pressure increased [Recovered/Resolved]
